FAERS Safety Report 18566470 (Version 2)
Quarter: 2020Q4

REPORT INFORMATION
  Report Type: Report from Study
  Country: AR (occurrence: AR)
  Receive Date: 20201201
  Receipt Date: 20201208
  Transmission Date: 20210114
  Serious: Yes (Death, Hospitalization)
  Sender: FDA-Public Use
  Company Number: NVSC2020AR316973

PATIENT
  Age: 61 Year
  Sex: Female

DRUGS (1)
  1. KISQALI [Suspect]
     Active Substance: RIBOCICLIB
     Indication: BREAST CANCER METASTATIC
     Dosage: 600 MG, QD (200 MG, TID) (CAPSULE)
     Route: 048
     Dates: start: 20200717

REACTIONS (9)
  - General physical health deterioration [Fatal]
  - Hepatic failure [Unknown]
  - Hypotension [Fatal]
  - Acute kidney injury [Unknown]
  - Vomiting [Unknown]
  - Incorrect dosage administered [Unknown]
  - Cardiopulmonary failure [Fatal]
  - Blood bilirubin increased [Unknown]
  - Peripheral coldness [Fatal]

NARRATIVE: CASE EVENT DATE: 20201120
